FAERS Safety Report 16470338 (Version 3)
Quarter: 2019Q3

REPORT INFORMATION
  Report Type: Spontaneous
  Country: FR (occurrence: FR)
  Receive Date: 20190624
  Receipt Date: 20190827
  Transmission Date: 20191004
  Serious: Yes (Other)
  Sender: FDA-Public Use
  Company Number: FR-GRUNENTHAL-2019-15137

PATIENT
  Age: 75 Year
  Sex: Male

DRUGS (3)
  1. QUTENZA [Suspect]
     Active Substance: CAPSAICIN
     Indication: NEURALGIA
     Dosage: UNK
     Route: 061
     Dates: start: 20190521
  2. MORPHINE [Concomitant]
     Active Substance: MORPHINE
     Indication: NEOPLASM MALIGNANT
     Dosage: UNK, 2/DAY
  3. QUTENZA [Suspect]
     Active Substance: CAPSAICIN
     Dosage: UNK
     Route: 061
     Dates: start: 20190528

REACTIONS (7)
  - Pain [Recovered/Resolved]
  - Hyperaesthesia [Recovering/Resolving]
  - Drug ineffective [Unknown]
  - Peripheral swelling [Recovered/Resolved]
  - Burning sensation [Not Recovered/Not Resolved]
  - Erythema [Recovering/Resolving]
  - Suicidal ideation [Not Recovered/Not Resolved]

NARRATIVE: CASE EVENT DATE: 201905
